FAERS Safety Report 24343532 (Version 1)
Quarter: 2024Q3

REPORT INFORMATION
  Report Type: Spontaneous
  Country: GR (occurrence: GR)
  Receive Date: 20240920
  Receipt Date: 20240920
  Transmission Date: 20241017
  Serious: No
  Sender: PFIZER
  Company Number: GR-PFIZER INC-PV202400034058

PATIENT
  Age: 13 Year
  Sex: Male
  Weight: 70 kg

DRUGS (2)
  1. GENOTROPIN [Suspect]
     Active Substance: SOMATROPIN
     Indication: Growth hormone deficiency
     Dosage: 1.2 MG, DAILY / 6 DAYS / 12 MG PEN
     Route: 058
     Dates: start: 202103, end: 20240205
  2. MONTELUKAST SODIUM [Concomitant]
     Active Substance: MONTELUKAST\MONTELUKAST SODIUM
     Indication: Asthma
     Dosage: 5 MG, 1X1

REACTIONS (4)
  - Insulin-like growth factor increased [Unknown]
  - Device breakage [Unknown]
  - Device issue [Unknown]
  - Expired device used [Unknown]
